FAERS Safety Report 24303369 (Version 1)
Quarter: 2024Q3

REPORT INFORMATION
  Report Type: Spontaneous
  Country: US (occurrence: None)
  Receive Date: 20240910
  Receipt Date: 20240910
  Transmission Date: 20241017
  Serious: Yes (Hospitalization)
  Sender: Public
  Company Number: None

PATIENT
  Sex: Female
  Weight: 74.4 kg

DRUGS (2)
  1. CARBOPLATIN [Suspect]
     Active Substance: CARBOPLATIN
     Dates: end: 20240409
  2. GEMCITABINE HYDROCHLORIDE [Suspect]
     Active Substance: GEMCITABINE HYDROCHLORIDE
     Dates: end: 20240409

REACTIONS (18)
  - Peripheral artery occlusion [None]
  - Iliac artery occlusion [None]
  - Skin ulcer [None]
  - Cellulitis [None]
  - Staphylococcal sepsis [None]
  - Osteomyelitis [None]
  - Escherichia infection [None]
  - Cardiac failure congestive [None]
  - Cerebrovascular accident [None]
  - Blister infected [None]
  - Enterococcal infection [None]
  - Gangrene [None]
  - Enterobacter infection [None]
  - Haemoglobin decreased [None]
  - Mental status changes [None]
  - Gastrointestinal haemorrhage [None]
  - Leg amputation [None]
  - Dyspnoea [None]

NARRATIVE: CASE EVENT DATE: 20240414
